FAERS Safety Report 10450544 (Version 1)
Quarter: 2014Q3

REPORT INFORMATION
  Report Type: Spontaneous
  Country: SE (occurrence: SE)
  Receive Date: 20140912
  Receipt Date: 20140912
  Transmission Date: 20150326
  Serious: Yes (Hospitalization)
  Sender: FDA-Public Use
  Company Number: SE-GLAXOSMITHKLINE-B1032539A

PATIENT
  Age: 47 Year
  Sex: Female

DRUGS (1)
  1. TYVERB [Suspect]
     Active Substance: LAPATINIB
     Indication: BREAST CANCER
     Route: 065
     Dates: start: 20120425, end: 20140820

REACTIONS (5)
  - Abdominal pain [Unknown]
  - Hepatotoxicity [Not Recovered/Not Resolved]
  - Alanine aminotransferase increased [Unknown]
  - Hepatomegaly [Unknown]
  - Eating disorder [Unknown]

NARRATIVE: CASE EVENT DATE: 20140715
